FAERS Safety Report 24815018 (Version 1)
Quarter: 2025Q1

REPORT INFORMATION
  Report Type: Spontaneous
  Country: US (occurrence: None)
  Receive Date: 20250107
  Receipt Date: 20250107
  Transmission Date: 20250409
  Serious: Yes (Other)
  Sender: FDA-CTU
  Company Number: None

PATIENT
  Age: 30 Year
  Sex: Female
  Weight: 95.85 kg

DRUGS (1)
  1. AQUAPHOR HEALING [Suspect]
     Active Substance: PETROLATUM
     Dates: start: 20250107, end: 20250107

REACTIONS (6)
  - Hypersensitivity [None]
  - Pruritus [None]
  - Erythema [None]
  - Skin burning sensation [None]
  - Paraesthesia [None]
  - Rash [None]

NARRATIVE: CASE EVENT DATE: 20250107
